FAERS Safety Report 20808773 (Version 1)
Quarter: 2022Q2

REPORT INFORMATION
  Report Type: Spontaneous
  Country: US (occurrence: US)
  Receive Date: 20220510
  Receipt Date: 20220510
  Transmission Date: 20220721
  Serious: No
  Sender: FDA-Public Use
  Company Number: US-PFIZER INC-202200687121

PATIENT
  Age: 49 Year
  Sex: Female
  Weight: 72.57 kg

DRUGS (2)
  1. PAXLOVID [Suspect]
     Active Substance: NIRMATRELVIR\RITONAVIR
     Indication: COVID-19 treatment
     Dosage: UNK
  2. MIDODRINE [Concomitant]
     Active Substance: MIDODRINE
     Indication: Chronic fatigue syndrome
     Dosage: 5 MG

REACTIONS (1)
  - Diarrhoea [Unknown]
